FAERS Safety Report 7941426-9 (Version None)
Quarter: 2011Q4

REPORT INFORMATION
  Report Type: 
  Country: None (occurrence: None)
  Receive Date: 20111122
  Receipt Date: 20111122
  Transmission Date: 20120403
  Serious: Yes (Hospitalization, Other)
  Sender: FDA-Public Use
  Company Number: None

PATIENT
  Sex: Female
  Weight: 80.7403 kg

DRUGS (2)
  1. ALBUTEROL [Suspect]
     Indication: ASTHMA
     Dosage: 2X DAY
  2. COMBIVENT [Suspect]
     Dosage: 2X DAY

REACTIONS (4)
  - THROAT TIGHTNESS [None]
  - PHARYNGEAL OEDEMA [None]
  - THROAT IRRITATION [None]
  - DYSPNOEA [None]
